FAERS Safety Report 10156617 (Version 1)
Quarter: 2014Q2

REPORT INFORMATION
  Report Type: Spontaneous
  Country: US (occurrence: None)
  Receive Date: 20140505
  Receipt Date: 20140505
  Transmission Date: 20141212
  Serious: Yes (Other)
  Sender: FDA-Public Use
  Company Number: 2014-00065

PATIENT
  Sex: Female

DRUGS (1)
  1. ZICAM COLD REMEDY RAPIDMELTS [Suspect]
     Indication: NASOPHARYNGITIS
     Dosage: 1 RAPIDMELT
     Route: 048
     Dates: start: 20140427

REACTIONS (4)
  - Malaise [None]
  - Dizziness [None]
  - Fall [None]
  - Refusal of treatment by patient [None]
